FAERS Safety Report 17275395 (Version 2)
Quarter: 2020Q1

REPORT INFORMATION
  Report Type: Spontaneous
  Country: IL (occurrence: IL)
  Receive Date: 20200116
  Receipt Date: 20200314
  Transmission Date: 20200409
  Serious: Yes (Other)
  Sender: FDA-Public Use
  Company Number: IL-AMGEN-ISRSP2020004341

PATIENT
  Age: 77 Year
  Sex: Female

DRUGS (6)
  1. LOSARDEX [Concomitant]
     Active Substance: LOSARTAN POTASSIUM
     Dosage: 12.5 MILLIGRAM
  2. LIPITOR [Concomitant]
     Active Substance: ATORVASTATIN CALCIUM
     Dosage: 20 MILLIGRAM
  3. CALCIMED [Concomitant]
     Dosage: UNK
  4. VITAMINE D [Concomitant]
     Active Substance: CHOLECALCIFEROL
     Dosage: 2000 UNIT
  5. PROLIA [Suspect]
     Active Substance: DENOSUMAB
     Indication: OSTEOPOROSIS
     Dosage: UNK
     Route: 065
  6. FRAGMIN [Concomitant]
     Active Substance: DALTEPARIN SODIUM
     Dosage: 5000 INTERNATIONAL UNIT
     Route: 058

REACTIONS (7)
  - Breast cancer [Unknown]
  - Hip arthroplasty [Unknown]
  - Periprosthetic fracture [Unknown]
  - Carotid artery stenosis [Unknown]
  - Femoral neck fracture [Unknown]
  - Granulomatosis with polyangiitis [Unknown]
  - Asthma [Unknown]

NARRATIVE: CASE EVENT DATE: 2016
